FAERS Safety Report 4539891-2 (Version None)
Quarter: 2004Q4

REPORT INFORMATION
  Report Type: 
  Country: None (occurrence: None)
  Receive Date: 20041223
  Receipt Date: 20041214
  Transmission Date: 20050328
  Serious: Yes (Life-Threatening)
  Sender: FDA-Public Use
  Company Number: 2004114200

PATIENT
  Age: 54 Year
  Sex: Female

DRUGS (4)
  1. CELEBRA (CELECOXIB) [Suspect]
     Indication: RHEUMATOID ARTHRITIS
     Dosage: 400 MG (200 MG, BID INTERVAL:  DAILY), ORAL
     Route: 048
     Dates: start: 20010126, end: 20041115
  2. PROGYNOVA (ESTRADIOL VALERATE) [Concomitant]
  3. ZYRTEC [Concomitant]
  4. THYROXIN-NATRIUM (LEVOTHYROXINE SODIUM) [Concomitant]

REACTIONS (1)
  - CEREBROVASCULAR ACCIDENT [None]
